FAERS Safety Report 21244683 (Version 1)
Quarter: 2022Q3

REPORT INFORMATION
  Report Type: Spontaneous
  Country: US (occurrence: US)
  Receive Date: 20220823
  Receipt Date: 20220823
  Transmission Date: 20221027
  Serious: No
  Sender: FDA-Public Use
  Company Number: US-INCYTE CORPORATION-2022IN007877

PATIENT

DRUGS (4)
  1. JAKAFI [Suspect]
     Active Substance: RUXOLITINIB
     Indication: Essential thrombocythaemia
     Dosage: LOWER DOSE
     Route: 065
     Dates: start: 20220207
  2. JAKAFI [Suspect]
     Active Substance: RUXOLITINIB
     Dosage: 20 MILLIGRAM, BID
     Route: 048
     Dates: start: 20220328
  3. HYDREA [Suspect]
     Active Substance: HYDROXYUREA
     Dosage: 1500 MILLIGRAM
     Route: 065
  4. OXCARBAZEPINE [Suspect]
     Active Substance: OXCARBAZEPINE
     Route: 065

REACTIONS (3)
  - Stomatitis [Unknown]
  - Swelling [Unknown]
  - Off label use [Unknown]
